FAERS Safety Report 13843994 (Version 1)
Quarter: 2017Q3

REPORT INFORMATION
  Report Type: Spontaneous
  Country: US (occurrence: US)
  Receive Date: 20170808
  Receipt Date: 20170808
  Transmission Date: 20171127
  Serious: No
  Sender: FDA-Public Use
  Company Number: US-009507513-1707USA009739

PATIENT
  Age: 19 Year
  Sex: Female
  Weight: 56.69 kg

DRUGS (1)
  1. IMPLANON [Suspect]
     Active Substance: ETONOGESTREL
     Indication: CONTRACEPTION
     Dosage: 1 IMPLANT, 3 YEAR IMPLANT
     Route: 059
     Dates: start: 201502

REACTIONS (1)
  - Amenorrhoea [Recovered/Resolved]

NARRATIVE: CASE EVENT DATE: 2016
